FAERS Safety Report 5133846-5 (Version None)
Quarter: 2006Q4

REPORT INFORMATION
  Report Type: 
  Country: None (occurrence: None)
  Receive Date: 20061018
  Receipt Date: 20061003
  Transmission Date: 20070319
  Serious: Yes (Hospitalization)
  Sender: FDA-Public Use
  Company Number: 2006001912

PATIENT
  Sex: Male
  Weight: 90.7 kg

DRUGS (6)
  1. ERLOTINIB (TABLET) (ERLOTINIB HCL) [Suspect]
     Indication: COLON CANCER METASTATIC
     Dosage: 150 MG (QD), ORAL
     Route: 048
     Dates: start: 20060912
  2. TOPOTECAN (TOPOTECAN) [Suspect]
     Indication: COLON CANCER METASTATIC
     Dosage: 2.1 MG
     Dates: start: 20060911
  3. FENTANYL CITRATE [Concomitant]
  4. DILAUDID [Concomitant]
  5. AVINZA [Concomitant]
  6. NIFEDIPINE [Concomitant]

REACTIONS (2)
  - HAEMATURIA [None]
  - PAIN [None]
